FAERS Safety Report 8837633 (Version 2)
Quarter: 2015Q1

REPORT INFORMATION
  Report Type: Report from Study
  Country: US (occurrence: US)
  Receive Date: 20121012
  Receipt Date: 20150204
  Transmission Date: 20150721
  Serious: Yes (Other)
  Sender: FDA-Public Use
  Company Number: US-ROCHE-1139517

PATIENT
  Sex: Female
  Weight: 42.45 kg

DRUGS (9)
  1. SYNTHROID [Concomitant]
     Active Substance: LEVOTHYROXINE SODIUM
     Route: 065
  2. PROTROPIN [Suspect]
     Active Substance: SOMATREM
     Route: 058
  3. PROVERA [Concomitant]
     Active Substance: MEDROXYPROGESTERONE ACETATE
     Route: 065
  4. PROTROPIN [Suspect]
     Active Substance: SOMATREM
     Indication: TURNER^S SYNDROME
     Route: 058
  5. SYNTHROID [Concomitant]
     Active Substance: LEVOTHYROXINE SODIUM
     Route: 065
  6. CLARITIN [Concomitant]
     Active Substance: LORATADINE
  7. PROTROPIN [Suspect]
     Active Substance: SOMATREM
     Indication: HYPOTHYROIDISM
     Route: 058
  8. SELDANE [Concomitant]
     Active Substance: TERFENADINE
     Route: 065
  9. PREMARIN [Concomitant]
     Active Substance: ESTROGENS, CONJUGATED
     Route: 065

REACTIONS (5)
  - Cellulitis [Unknown]
  - Melanocytic naevus [Unknown]
  - Raynaud^s phenomenon [Unknown]
  - Oedema peripheral [Unknown]
  - Peripheral swelling [Unknown]
